FAERS Safety Report 7519533-4 (Version None)
Quarter: 2011Q2

REPORT INFORMATION
  Report Type: 
  Country: None (occurrence: None)
  Receive Date: 20110602
  Receipt Date: 20110527
  Transmission Date: 20111010
  Serious: Yes (Death)
  Sender: FDA-Public Use
  Company Number: DE-ALLERGAN-1103857US

PATIENT
  Age: 73 Year
  Sex: Male

DRUGS (1)
  1. OZURDEX [Suspect]
     Indication: MACULAR OEDEMA
     Dosage: UNK
     Route: 031
     Dates: start: 20101207, end: 20101207

REACTIONS (2)
  - COMPLETED SUICIDE [None]
  - OCULAR HYPERTENSION [None]
